FAERS Safety Report 4423632-3 (Version None)
Quarter: 2004Q3

REPORT INFORMATION
  Report Type: 
  Country: None (occurrence: None)
  Receive Date: 20040805
  Receipt Date: 20040729
  Transmission Date: 20050211
  Serious: Yes (Death)
  Sender: FDA-Public Use
  Company Number: 2004021190

PATIENT
  Sex: Male

DRUGS (3)
  1. GEODON [Suspect]
     Indication: ILL-DEFINED DISORDER
     Dosage: 80 MG (80 MG, 1 IN 1 D), ORAL
     Route: 048
  2. HALOPERIDOL [Concomitant]
  3. DIAZEPAM [Concomitant]

REACTIONS (1)
  - SUDDEN DEATH [None]
